FAERS Safety Report 9196571 (Version 1)
Quarter: 2013Q1

REPORT INFORMATION
  Report Type: Spontaneous
  Country: US (occurrence: US)
  Receive Date: 20130328
  Receipt Date: 20130328
  Transmission Date: 20140127
  Serious: No
  Sender: FDA-Public Use
  Company Number: US-VERTEX PHARMACEUTICALS INC.-2013-004051

PATIENT
  Age: 59 Year
  Sex: Male
  Weight: 100 kg

DRUGS (5)
  1. INCIVEK [Suspect]
     Indication: HEPATITIS C
     Dosage: 750 MG, TID
     Route: 048
     Dates: start: 20130101, end: 20130318
  2. PEGASYS [Suspect]
     Indication: HEPATITIS C
     Dosage: 180 ?G, QW
     Route: 058
     Dates: start: 20130101
  3. RIBAVIRIN [Suspect]
     Indication: HEPATITIS C
     Dosage: 600 MG, BID
     Route: 048
     Dates: start: 20130101
  4. RIBAVIRIN [Suspect]
     Dosage: 300 MG, BID
     Dates: start: 20130318
  5. DOXEPIN [Concomitant]
     Dosage: 25 MG, QD

REACTIONS (4)
  - Somnolence [Unknown]
  - Oedema peripheral [Unknown]
  - Rash generalised [Not Recovered/Not Resolved]
  - Pruritus [Unknown]
